FAERS Safety Report 6305582-0 (Version None)
Quarter: 2009Q3

REPORT INFORMATION
  Report Type: 
  Country: None (occurrence: None)
  Receive Date: 20090807
  Receipt Date: 20090724
  Transmission Date: 20100115
  Serious: Yes (Hospitalization)
  Sender: FDA-Public Use
  Company Number: 2009BI023230

PATIENT
  Age: 37 Year
  Sex: Male
  Weight: 98 kg

DRUGS (3)
  1. ZEVALIN [Suspect]
     Indication: B-CELL LYMPHOMA
     Dosage: 1X; IV
     Route: 042
     Dates: start: 20090116, end: 20090116
  2. RITUXIMAB (CON.) [Concomitant]
  3. IBUPROFEN (CON.) [Concomitant]

REACTIONS (2)
  - AGRANULOCYTOSIS [None]
  - SINUSITIS [None]
